FAERS Safety Report 15975207 (Version 1)
Quarter: 2019Q1

REPORT INFORMATION
  Report Type: Spontaneous
  Country: US (occurrence: US)
  Receive Date: 20190218
  Receipt Date: 20190218
  Transmission Date: 20190418
  Serious: Yes (Other)
  Sender: FDA-Public Use
  Company Number: US-ALK-ABELLO A/S-2019AA000666

PATIENT

DRUGS (1)
  1. ODACTRA [Suspect]
     Active Substance: DERMATOPHAGOIDES FARINAE\DERMATOPHAGOIDES PTERONYSSINUS
     Indication: MITE ALLERGY
     Dosage: 1 TABLET, QD
     Route: 060
     Dates: start: 20180413, end: 20180608

REACTIONS (2)
  - Migraine [Recovered/Resolved]
  - Impaired work ability [Recovered/Resolved]

NARRATIVE: CASE EVENT DATE: 20180423
